FAERS Safety Report 5299411-4 (Version None)
Quarter: 2007Q2

REPORT INFORMATION
  Report Type: 
  Country: None (occurrence: None)
  Receive Date: 20070417
  Receipt Date: 20070412
  Transmission Date: 20071010
  Serious: Yes (Hospitalization)
  Sender: FDA-Public Use
  Company Number: SE-BRISTOL-MYERS SQUIBB COMPANY-13679279

PATIENT
  Age: 72 Year
  Sex: Male

DRUGS (11)
  1. BLINDED: APIXABAN [Suspect]
     Indication: ACUTE CORONARY SYNDROME
     Route: 048
     Dates: start: 20070118
  2. BLINDED: PLACEBO [Suspect]
     Indication: ACUTE CORONARY SYNDROME
     Route: 048
     Dates: start: 20070118
  3. NITROGLYCERIN [Suspect]
     Dates: start: 20070209
  4. CLOPIDOGREL BISULFATE [Concomitant]
     Dates: start: 20070117
  5. ASPIRIN [Concomitant]
     Dates: start: 20070117
  6. METOPROLOL SUCCINATE [Concomitant]
     Dates: start: 20070116
  7. SIMVASTATIN [Concomitant]
     Dates: start: 20070117
  8. DIAZEPAM [Concomitant]
     Dates: start: 20070116, end: 20070116
  9. ZOPIKLON [Concomitant]
     Dates: start: 20070118, end: 20070118
  10. ALFUZOSIN [Concomitant]
     Dates: start: 20061018
  11. MORFIN [Concomitant]
     Dates: start: 20070116, end: 20070116

REACTIONS (2)
  - ANGINA PECTORIS [None]
  - SYNCOPE [None]
